FAERS Safety Report 7495980-4 (Version None)
Quarter: 2011Q2

REPORT INFORMATION
  Report Type: 
  Country: None (occurrence: None)
  Receive Date: 20110523
  Receipt Date: 20110519
  Transmission Date: 20111010
  Serious: Yes (Other)
  Sender: FDA-Public Use
  Company Number: AU-PFIZER INC-2011109385

PATIENT
  Age: 40 Year
  Sex: Male

DRUGS (2)
  1. ZELDOX /SWE/ [Concomitant]
     Indication: SCHIZOPHRENIA
     Dosage: 80 MG, 2X/DAY
  2. VARENICLINE TARTRATE [Suspect]
     Indication: SMOKING CESSATION THERAPY
     Dosage: 0.5 MG, 2X/DAY

REACTIONS (3)
  - SCHIZOPHRENIA [None]
  - PSYCHOTIC DISORDER [None]
  - CONDITION AGGRAVATED [None]
